FAERS Safety Report 13260245 (Version 1)
Quarter: 2017Q1

REPORT INFORMATION
  Report Type: Spontaneous
  Country: US (occurrence: US)
  Receive Date: 20170222
  Receipt Date: 20170222
  Transmission Date: 20170428
  Serious: No
  Sender: FDA-Public Use
  Company Number: US-LUNDBECK-DKLU2022095

PATIENT
  Age: 73 Year
  Sex: Male

DRUGS (5)
  1. DROXIDOPA [Suspect]
     Active Substance: DROXIDOPA
     Indication: PRODUCT USED FOR UNKNOWN INDICATION
     Route: 065
  2. DROXIDOPA [Suspect]
     Active Substance: DROXIDOPA
     Route: 065
  3. DROXIDOPA [Suspect]
     Active Substance: DROXIDOPA
     Route: 065
  4. DROXIDOPA [Suspect]
     Active Substance: DROXIDOPA
     Route: 065
  5. FLUDROCORTISONE [Concomitant]
     Active Substance: FLUDROCORTISONE
     Indication: PRODUCT USED FOR UNKNOWN INDICATION
     Route: 065

REACTIONS (2)
  - Accidental overdose [Unknown]
  - Blood pressure increased [Unknown]
